FAERS Safety Report 25913288 (Version 1)
Quarter: 2025Q4

REPORT INFORMATION
  Report Type: Spontaneous
  Country: US (occurrence: US)
  Receive Date: 20251013
  Receipt Date: 20251013
  Transmission Date: 20260118
  Serious: No
  Sender: DR REDDYS
  Company Number: US-DRL-USA-USA/2025/08/012643

PATIENT
  Sex: Male

DRUGS (1)
  1. NICOTINE [Suspect]
     Active Substance: NICOTINE
     Indication: Smoking cessation therapy
     Dosage: TRANSDERMAL SYSTEM STEP 1 21MG (28 IN 1 CARTON)?SERIAL NUMBER: 4898500153
     Route: 062

REACTIONS (2)
  - Drug ineffective [Unknown]
  - Product quality issue [Unknown]
